FAERS Safety Report 9831211 (Version 2)
Quarter: 2014Q1

REPORT INFORMATION
  Report Type: Spontaneous
  Country: US (occurrence: US)
  Receive Date: 20140121
  Receipt Date: 20140129
  Transmission Date: 20141002
  Serious: No
  Sender: FDA-Public Use
  Company Number: US-009507513-1401USA006056

PATIENT
  Age: 64 Year
  Sex: Female

DRUGS (11)
  1. ASMANEX TWISTHALER [Suspect]
     Indication: BRONCHITIS
     Dosage: 1 INHALATION ONCE DAILY AT BEDTIME
     Route: 055
     Dates: start: 20140109, end: 20140113
  2. CEFTIN [Concomitant]
  3. MUCINEX [Concomitant]
  4. LIPITOR [Concomitant]
  5. FLUOXETINE [Concomitant]
  6. PRILOSEC [Concomitant]
     Route: 048
  7. ASPIRIN [Concomitant]
  8. VITAMIN D (UNSPECIFIED) [Concomitant]
  9. FOLIC ACID [Concomitant]
  10. CALCIUM (UNSPECIFIED) [Concomitant]
  11. NIACIN [Concomitant]

REACTIONS (3)
  - Drug ineffective for unapproved indication [Not Recovered/Not Resolved]
  - Drug dose omission [Unknown]
  - Product quality issue [Unknown]
